FAERS Safety Report 8444937-5 (Version None)
Quarter: 2012Q2

REPORT INFORMATION
  Report Type: 
  Country: None (occurrence: None)
  Receive Date: 20120611
  Receipt Date: 20120529
  Transmission Date: 20120825
  Serious: Yes (Death, Hospitalization, Other)
  Sender: FDA-Public Use
  Company Number: DSA_57651_2012

PATIENT
  Age: 24 Year
  Sex: Female

DRUGS (4)
  1. CITALOPRAM HYDROBROMIDE [Suspect]
     Indication: PRODUCT USED FOR UNKNOWN INDICATION
     Dosage: (MAXIMUM INGESTION OF 1.8 G ORAL)
     Route: 048
  2. TRAZODONE HCL [Suspect]
     Indication: PRODUCT USED FOR UNKNOWN INDICATION
     Dosage: (MAXIMUM INGESTION OF 4.5 G ORAL)
     Route: 048
  3. BUPROPION HCL [Suspect]
     Indication: PRODUCT USED FOR UNKNOWN INDICATION
     Dosage: (MAXIMUM INGESTION OF 13.5 G ORAL)
     Route: 048
  4. CLONAZEPAM [Suspect]
     Indication: PRODUCT USED FOR UNKNOWN INDICATION
     Dosage: (MAXIMUM INGESTION OF 90 MG ORAL)
     Route: 048

REACTIONS (16)
  - MULTIPLE DRUG OVERDOSE INTENTIONAL [None]
  - PERIPHERAL COLDNESS [None]
  - ELECTROCARDIOGRAM QRS COMPLEX PROLONGED [None]
  - GRAND MAL CONVULSION [None]
  - UNRESPONSIVE TO STIMULI [None]
  - MIOSIS [None]
  - FLUSHING [None]
  - PUPIL FIXED [None]
  - HYPOTENSION [None]
  - CORNEAL REFLEX DECREASED [None]
  - ELECTROCARDIOGRAM QT PROLONGED [None]
  - OXYGEN SATURATION DECREASED [None]
  - AREFLEXIA [None]
  - MYOCLONUS [None]
  - VENTRICULAR TACHYCARDIA [None]
  - NO THERAPEUTIC RESPONSE [None]
